FAERS Safety Report 7784777-3 (Version None)
Quarter: 2011Q3

REPORT INFORMATION
  Report Type: 
  Country: None (occurrence: None)
  Receive Date: 20110928
  Receipt Date: 20110926
  Transmission Date: 20111222
  Serious: Yes (Death)
  Sender: FDA-Public Use
  Company Number: VE-PFIZER INC-2011226793

PATIENT
  Age: 72 Year
  Sex: Female

DRUGS (2)
  1. LIPITOR [Suspect]
     Indication: HYPERCHOLESTEROLAEMIA
     Dosage: 40 MG, 1X/DAY
     Route: 048
  2. PLAVIX [Concomitant]
     Indication: CARDIAC DISORDER
     Dosage: 75 MG, 1X/DAY
     Route: 048

REACTIONS (1)
  - DEATH [None]
